FAERS Safety Report 13771090 (Version 1)
Quarter: 2017Q3

REPORT INFORMATION
  Report Type: Spontaneous
  Country: US (occurrence: US)
  Receive Date: 20170720
  Receipt Date: 20170720
  Transmission Date: 20171127
  Serious: No
  Sender: FDA-Public Use
  Company Number: US-TEVA-692650USA

PATIENT
  Age: 41 Year
  Sex: Male
  Weight: 89.89 kg

DRUGS (3)
  1. ADVAIR DISKUS [Concomitant]
     Active Substance: FLUTICASONE PROPIONATE\SALMETEROL XINAFOATE
     Indication: ASTHMA
     Dosage: 100/50
  2. LISINOPRIL. [Suspect]
     Active Substance: LISINOPRIL
     Indication: HYPERTENSION
     Dosage: 20 MILLIGRAM DAILY;
     Route: 048
     Dates: start: 20160804, end: 20160804
  3. WELLBUTRIN [Concomitant]
     Active Substance: BUPROPION HYDROCHLORIDE
     Dosage: 150 MILLIGRAM DAILY;

REACTIONS (3)
  - Lip swelling [Recovered/Resolved]
  - Expired product administered [Unknown]
  - Product substitution issue [Unknown]

NARRATIVE: CASE EVENT DATE: 20160804
